FAERS Safety Report 19212856 (Version 2)
Quarter: 2021Q2

REPORT INFORMATION
  Report Type: Report from Study
  Country: CZ (occurrence: CZ)
  Receive Date: 20210504
  Receipt Date: 20210602
  Transmission Date: 20210717
  Serious: Yes (Hospitalization)
  Sender: FDA-Public Use
  Company Number: CZ-TAKEDA-CZ201823430

PATIENT
  Age: 5 Year
  Sex: Male
  Weight: 21.77 kg

DRUGS (13)
  1. ADVATE [Suspect]
     Active Substance: ANTIHEMOPHILIC FACTOR, HUMAN RECOMBINANT
     Indication: FACTOR VIII DEFICIENCY
  2. NEOMYCIN SULFATE. [Concomitant]
     Active Substance: NEOMYCIN SULFATE
     Indication: TONSILLITIS
  3. ACIDUM 4?AMINOBENZOICUM [Concomitant]
     Indication: HAEMORRHAGE
     Route: 065
  4. ADVATE [Suspect]
     Active Substance: ANTIHEMOPHILIC FACTOR, HUMAN RECOMBINANT
     Indication: PROPHYLAXIS
     Dosage: 500 IU, 3X A WEEK
     Route: 042
     Dates: start: 20180624
  5. ADVATE [Suspect]
     Active Substance: ANTIHEMOPHILIC FACTOR, HUMAN RECOMBINANT
     Indication: FACTOR VIII DEFICIENCY
  6. AMOXICILLINUM [Concomitant]
     Indication: OTITIS MEDIA ACUTE
     Dosage: UNK
     Route: 065
  7. FLONIDAN [Concomitant]
     Active Substance: LORATADINE
     Indication: ARTHROPOD BITE
     Dosage: UNK
     Route: 065
  8. ADVATE [Suspect]
     Active Substance: ANTIHEMOPHILIC FACTOR, HUMAN RECOMBINANT
     Indication: PROPHYLAXIS
     Dosage: 500 IU, 3X A WEEK
     Route: 042
     Dates: start: 20180624
  9. ADVATE [Suspect]
     Active Substance: ANTIHEMOPHILIC FACTOR, HUMAN RECOMBINANT
     Indication: PROPHYLAXIS
     Dosage: 500 IU, 3X A WEEK
     Route: 042
     Dates: start: 20180624
  10. BENZATHENE [Concomitant]
     Indication: TONSILLITIS
     Dosage: UNK
     Route: 065
  11. OSPEN [PHENOXYMETHYLPENICILLIN] [Concomitant]
     Indication: TONSILLITIS
     Dosage: 327 MILLIGRAM, TID
     Route: 065
     Dates: start: 20190117, end: 20190125
  12. ADVATE [Suspect]
     Active Substance: ANTIHEMOPHILIC FACTOR, HUMAN RECOMBINANT
     Indication: FACTOR VIII DEFICIENCY
  13. COLECALCIFEROLUM [Concomitant]
     Indication: VITAMIN SUPPLEMENTATION
     Dosage: UNK
     Route: 065

REACTIONS (1)
  - Gastroenteritis [Recovered/Resolved]

NARRATIVE: CASE EVENT DATE: 20180624
